FAERS Safety Report 5423788-X (Version None)
Quarter: 2007Q3

REPORT INFORMATION
  Report Type: 
  Country: None (occurrence: None)
  Receive Date: 20070727
  Receipt Date: 20041228
  Transmission Date: 20080115
  Serious: Yes (Hospitalization)
  Sender: FDA-Public Use
  Company Number: THYM-10393

PATIENT
  Age: 54 Year
  Sex: Female
  Weight: 76.9 kg

DRUGS (4)
  1. THYMOGLOBULIN [Suspect]
     Indication: GRAFT VERSUS HOST DISEASE
     Dosage: 0.5 MG/KG QD IV
     Route: 042
     Dates: start: 20041031, end: 20041031
  2. THYMOGLOBULIN [Suspect]
     Indication: GRAFT VERSUS HOST DISEASE
     Dosage: 2.5 MG/KG QD IV
     Route: 042
     Dates: start: 20041031, end: 20041031
  3. THYMOGLOBULIN [Suspect]
     Indication: GRAFT VERSUS HOST DISEASE
     Dosage: 3 MG/KG QD IV
     Route: 042
     Dates: start: 20041101, end: 20041101
  4. PREDNISONE [Concomitant]

REACTIONS (2)
  - CONFUSIONAL STATE [None]
  - HYPERGLYCAEMIA [None]
